FAERS Safety Report 10188613 (Version 1)
Quarter: 2014Q2

REPORT INFORMATION
  Report Type: Spontaneous
  Country: US (occurrence: US)
  Receive Date: 20140522
  Receipt Date: 20140522
  Transmission Date: 20141212
  Serious: No
  Sender: FDA-Public Use
  Company Number: US-SA-2014SA034737

PATIENT
  Sex: Female

DRUGS (5)
  1. LANTUS [Suspect]
     Indication: DIABETES MELLITUS
     Route: 058
  2. NOVOLOG [Concomitant]
  3. FLEXPEN [Concomitant]
  4. METFORMIN [Concomitant]
  5. ACCOLATE [Concomitant]

REACTIONS (1)
  - Glycosylated haemoglobin increased [Unknown]
